FAERS Safety Report 14413922 (Version 1)
Quarter: 2018Q1

REPORT INFORMATION
  Report Type: Spontaneous
  Country: US (occurrence: US)
  Receive Date: 20180118
  Receipt Date: 20180118
  Transmission Date: 20180509
  Serious: Yes (Hospitalization)
  Sender: FDA-Public Use
  Company Number: None

PATIENT
  Age: 61 Year
  Sex: Female

DRUGS (1)
  1. CAPECITABINE 500MG TABLETS [Suspect]
     Active Substance: CAPECITABINE
     Indication: RHEUMATOID ARTHRITIS
     Route: 048
     Dates: start: 20171109

REACTIONS (6)
  - Pulmonary embolism [None]
  - Dyspnoea [None]
  - Fatigue [None]
  - Nausea [None]
  - Drug dose omission [None]
  - Weight decreased [None]

NARRATIVE: CASE EVENT DATE: 20171231
